FAERS Safety Report 10737492 (Version 1)
Quarter: 2015Q1

REPORT INFORMATION
  Report Type: Spontaneous
  Country: US (occurrence: None)
  Receive Date: 20150122
  Receipt Date: 20150122
  Transmission Date: 20150721
  Serious: No
  Sender: FDA-Public Use
  Company Number: None

PATIENT

DRUGS (6)
  1. LIPITOR [Suspect]
     Active Substance: ATORVASTATIN CALCIUM
  2. INVEGA SUSTENNA [Suspect]
     Active Substance: PALIPERIDONE PALMITATE
  3. BONIVA [Suspect]
     Active Substance: IBANDRONATE SODIUM
  4. ALTACE [Suspect]
     Active Substance: RAMIPRIL
  5. PROLIXIN DECANOATE [Suspect]
     Active Substance: FLUPHENAZINE DECANOATE
  6. NAVANE [Suspect]
     Active Substance: THIOTHIXENE

REACTIONS (11)
  - Insomnia [None]
  - Liver disorder [None]
  - Flatulence [None]
  - Renal disorder [None]
  - Abdominal distension [None]
  - Anxiety [None]
  - Nervousness [None]
  - Tremor [None]
  - Bladder disorder [None]
  - Constipation [None]
  - Muscle twitching [None]
